FAERS Safety Report 23837698 (Version 1)
Quarter: 2024Q2

REPORT INFORMATION
  Report Type: Spontaneous
  Country: US (occurrence: None)
  Receive Date: 20240508
  Receipt Date: 20240508
  Transmission Date: 20240716
  Serious: Yes (unspecified)
  Sender: FDA-Public Use
  Company Number: None

PATIENT
  Age: 76 Year
  Sex: Female
  Weight: 68.85 kg

DRUGS (1)
  1. PRALUENT [Suspect]
     Active Substance: ALIROCUMAB
     Indication: Low density lipoprotein increased
     Dosage: OTHER QUANTITY : 1 INJECTION(S);?OTHER FREQUENCY : EVERY 2 WEEKS;?
     Route: 058
     Dates: start: 20230815, end: 20240312

REACTIONS (11)
  - Back pain [None]
  - Pain in extremity [None]
  - Arthralgia [None]
  - Pain in extremity [None]
  - Muscular weakness [None]
  - Myalgia [None]
  - Walking aid user [None]
  - Muscle spasms [None]
  - Brain fog [None]
  - Therapy interrupted [None]
  - Low density lipoprotein increased [None]

NARRATIVE: CASE EVENT DATE: 20240326
